FAERS Safety Report 10792325 (Version 3)
Quarter: 2015Q1

REPORT INFORMATION
  Report Type: Report from Study
  Country: KR (occurrence: KR)
  Receive Date: 20150213
  Receipt Date: 20150219
  Transmission Date: 20150721
  Serious: Yes (Hospitalization)
  Sender: FDA-Public Use
  Company Number: KR-ABBVIE-12P-090-0922568-00

PATIENT
  Sex: Male
  Weight: 67 kg

DRUGS (8)
  1. MACPERAN [Concomitant]
     Indication: PROPHYLAXIS OF NAUSEA AND VOMITING
     Dosage: DAILY
     Route: 048
     Dates: start: 20100705
  2. GLAMIN [Concomitant]
     Indication: PARENTERAL NUTRITION
     Dosage: DAILY
     Route: 042
     Dates: start: 20110319, end: 20110321
  3. SPATAM [Concomitant]
     Indication: NASOPHARYNGITIS
  4. FLASINYL [Concomitant]
     Indication: INFECTION PROPHYLAXIS
     Dosage: DAILY
     Route: 048
     Dates: start: 20110321, end: 20110328
  5. SPATAM [Concomitant]
     Indication: PROPHYLAXIS
     Dosage: DAILY
     Route: 042
     Dates: start: 20110319, end: 20110321
  6. KALETRA [Suspect]
     Active Substance: LOPINAVIR\RITONAVIR
     Indication: HIV INFECTION
     Route: 048
     Dates: start: 20100503
  7. LAMIVUDINE AND ZIDOVUDINE [Concomitant]
     Active Substance: LAMIVUDINE\ZIDOVUDINE
     Indication: ANTIRETROVIRAL THERAPY
     Dosage: DAILY
     Route: 048
     Dates: start: 20100503
  8. CIROK [Concomitant]
     Indication: INFECTION PROPHYLAXIS
     Dosage: DAILY
     Route: 048
     Dates: start: 20110321, end: 20110328

REACTIONS (5)
  - Nausea [Recovering/Resolving]
  - Vomiting [Recovered/Resolved]
  - Insomnia [Recovered/Resolved]
  - Asthenia [Recovered/Resolved]
  - Diarrhoea [Recovered/Resolved]

NARRATIVE: CASE EVENT DATE: 20100615
